FAERS Safety Report 5760335-7 (Version None)
Quarter: 2008Q2

REPORT INFORMATION
  Report Type: 
  Country: None (occurrence: None)
  Receive Date: 20080605
  Receipt Date: 20080524
  Transmission Date: 20081010
  Serious: Yes (Hospitalization, Other)
  Sender: FDA-Public Use
  Company Number: US-PFIZER INC-2008026902

PATIENT
  Sex: Female
  Weight: 47.6 kg

DRUGS (2)
  1. RELPAX [Suspect]
     Indication: MIGRAINE
  2. IBUROFEN [Suspect]
     Indication: MIGRAINE

REACTIONS (3)
  - BLOOD CREATININE INCREASED [None]
  - HYPOTHYROIDISM [None]
  - NON-HODGKIN'S LYMPHOMA [None]
